FAERS Safety Report 13142973 (Version 2)
Quarter: 2017Q2

REPORT INFORMATION
  Report Type: Spontaneous
  Country: US (occurrence: US)
  Receive Date: 20170124
  Receipt Date: 20170607
  Transmission Date: 20170830
  Serious: No
  Sender: FDA-Public Use
  Company Number: US-PFIZER INC-2017029292

PATIENT
  Age: 66 Year
  Sex: Male

DRUGS (1)
  1. SUTENT [Suspect]
     Active Substance: SUNITINIB MALATE
     Indication: GASTRIC CANCER
     Dosage: 37.5 MG, DAILY (1 CAPSULE BY MOUTH DAILY CONTINUOUSLY WITH NO BREAK)
     Route: 048
     Dates: start: 201611

REACTIONS (2)
  - Oral pain [Not Recovered/Not Resolved]
  - Diarrhoea [Unknown]
